FAERS Safety Report 8499495-6 (Version None)
Quarter: 2012Q3

REPORT INFORMATION
  Report Type: 
  Country: None (occurrence: None)
  Receive Date: 20120710
  Receipt Date: 20120628
  Transmission Date: 20120928
  Serious: Yes (Other)
  Sender: FDA-Public Use
  Company Number: US-ELI_LILLY_AND_COMPANY-US201206002116

PATIENT
  Sex: Female

DRUGS (4)
  1. FORTEO [Suspect]
     Dosage: UNK, QD
     Dates: start: 20120401
  2. FORTEO [Suspect]
     Indication: OSTEOPENIA
     Dosage: UNK, QD
     Dates: start: 20060501, end: 20080401
  3. BONIVA [Concomitant]
     Indication: OSTEOPOROSIS
  4. FOSAMAX [Concomitant]
     Indication: OSTEOPOROSIS

REACTIONS (2)
  - INCORRECT DRUG ADMINISTRATION DURATION [None]
  - FEMUR FRACTURE [None]
